FAERS Safety Report 8115134-8 (Version None)
Quarter: 2012Q1

REPORT INFORMATION
  Report Type: 
  Country: None (occurrence: None)
  Receive Date: 20120206
  Receipt Date: 20120127
  Transmission Date: 20120608
  Serious: Yes (Hospitalization)
  Sender: FDA-Public Use
  Company Number: JP-EISAI INC-E7389-02013-CLI-JP

PATIENT
  Sex: Female
  Weight: 41 kg

DRUGS (2)
  1. HALAVEN [Suspect]
     Indication: BREAST CANCER RECURRENT
     Route: 041
     Dates: start: 20110816
  2. HALAVEN [Suspect]
     Indication: METASTASES TO LYMPH NODES

REACTIONS (1)
  - PNEUMONIA [None]
